FAERS Safety Report 8471627-5 (Version None)
Quarter: 2012Q2

REPORT INFORMATION
  Report Type: 
  Country: None (occurrence: None)
  Receive Date: 20120627
  Receipt Date: 20120618
  Transmission Date: 20120825
  Serious: Yes (Other)
  Sender: FDA-Public Use
  Company Number: US-ASTRAZENECA-2010SE36736

PATIENT
  Age: 80 Year
  Sex: Female

DRUGS (3)
  1. LEXAPRO [Concomitant]
  2. NEXIUM [Suspect]
     Route: 048
  3. PREVACID [Concomitant]

REACTIONS (6)
  - CARDIAC ARREST [None]
  - APHONIA [None]
  - HYPERSENSITIVITY [None]
  - DRUG DOSE OMISSION [None]
  - ADVERSE EVENT [None]
  - HEART RATE IRREGULAR [None]
